FAERS Safety Report 10087091 (Version 1)
Quarter: 2014Q2

REPORT INFORMATION
  Report Type: Spontaneous
  Country: US (occurrence: US)
  Receive Date: 20140418
  Receipt Date: 20140418
  Transmission Date: 20141212
  Serious: No
  Sender: FDA-Public Use
  Company Number: US-UPSHER-SMITH LABORATORIES, INC.-13003409

PATIENT
  Age: 82 Year
  Sex: Female

DRUGS (4)
  1. PREVALITE [Suspect]
     Indication: IRRITABLE BOWEL SYNDROME
     Dosage: 1 TEASPOONFUL DILUTED IN WATER, QD
     Route: 048
     Dates: start: 201309
  2. NORVASC                            /00972401/ [Concomitant]
     Dosage: UNK
  3. BENICAR [Concomitant]
     Dosage: UNK
  4. VITAMINS NOS [Concomitant]
     Dosage: UNK

REACTIONS (1)
  - Gout [Recovering/Resolving]
